FAERS Safety Report 25277106 (Version 3)
Quarter: 2025Q3

REPORT INFORMATION
  Report Type: Spontaneous
  Country: US (occurrence: US)
  Receive Date: 20250507
  Receipt Date: 20250808
  Transmission Date: 20251021
  Serious: No
  Sender: LUPIN
  Company Number: US-LUPIN PHARMACEUTICALS INC.-2025-03737

PATIENT
  Age: 76 Year
  Weight: 68.027 kg

DRUGS (4)
  1. TIOTROPIUM BROMIDE [Suspect]
     Active Substance: TIOTROPIUM BROMIDE
     Indication: Pneumonia
     Dosage: 1 DOSAGE FORM, QD (ONE CAPSULE ONCE A DAY)
  2. TIOTROPIUM BROMIDE [Suspect]
     Active Substance: TIOTROPIUM BROMIDE
     Indication: Asthma
  3. ASPIRIN [Concomitant]
     Active Substance: ASPIRIN
     Indication: Product used for unknown indication
     Route: 065
  4. ROSUVASTATIN [Concomitant]
     Active Substance: ROSUVASTATIN
     Indication: Product used for unknown indication
     Route: 065

REACTIONS (4)
  - Drug dose omission by device [Unknown]
  - Product size issue [Unknown]
  - Product use in unapproved indication [Unknown]
  - No adverse event [Unknown]
